FAERS Safety Report 8921858 (Version 1)
Quarter: 2012Q4

REPORT INFORMATION
  Report Type: 
  Country: IT (occurrence: IT)
  Receive Date: 20121121
  Receipt Date: 20121121
  Transmission Date: 20130627
  Serious: Yes (Hospitalization)
  Sender: FDA-Public Use
  Company Number: IT-WATSON-2012-19864

PATIENT
  Sex: Female

DRUGS (1)
  1. TRAMADOL HYDROCHLORIDE [Suspect]
     Indication: PAIN
     Dosage: UNK, unknown
     Route: 048
     Dates: start: 20121024, end: 20121024

REACTIONS (5)
  - Sopor [Unknown]
  - Tremor [Unknown]
  - Vomiting [Unknown]
  - Medication error [Unknown]
  - Incorrect dose administered [None]
